FAERS Safety Report 6094810-5 (Version None)
Quarter: 2009Q1

REPORT INFORMATION
  Report Type: 
  Country: None (occurrence: None)
  Receive Date: 20090225
  Receipt Date: 20090218
  Transmission Date: 20090719
  Serious: Yes (Hospitalization, Other)
  Sender: FDA-Public Use
  Company Number: 2009SP002242

PATIENT
  Age: 71 Year
  Sex: Male
  Weight: 115.6672 kg

DRUGS (3)
  1. SOLARCAINE (BENZOCAINE) [Suspect]
     Dosage: ONCE; TOP
     Route: 061
  2. LIPITOR [Concomitant]
  3. ASPIRIN [Concomitant]

REACTIONS (1)
  - APPLICATION SITE VESICLES [None]
